FAERS Safety Report 4962513-3 (Version None)
Quarter: 2006Q1

REPORT INFORMATION
  Report Type: 
  Country: None (occurrence: None)
  Receive Date: 20060201
  Receipt Date: 20051031
  Transmission Date: 20060701
  Serious: No
  Sender: FDA-Public Use
  Company Number: 2005PV004337

PATIENT
  Age: 84 Year
  Sex: Male
  Weight: 85.7298 kg

DRUGS (11)
  1. BYETTA [Suspect]
     Indication: DIABETES MELLITUS NON-INSULIN-DEPENDENT
     Dosage: 5 MCG BID SC
     Route: 058
     Dates: start: 20051014
  2. PRILOSEC [Concomitant]
  3. LASIX [Concomitant]
  4. SLOMAX [Concomitant]
  5. LIPITOR [Concomitant]
  6. PROSCAR [Concomitant]
  7. AMARYL [Concomitant]
  8. ACTOS [Concomitant]
  9. IBUPROFEN [Concomitant]
  10. CARDIZEM [Concomitant]
  11. METFORMIN [Concomitant]

REACTIONS (3)
  - BLOOD GLUCOSE INCREASED [None]
  - DECREASED APPETITE [None]
  - GASTROOESOPHAGEAL REFLUX DISEASE [None]
